FAERS Safety Report 4699881-6 (Version None)
Quarter: 2005Q2

REPORT INFORMATION
  Report Type: 
  Country: None (occurrence: None)
  Receive Date: 20050624
  Receipt Date: 20050223
  Transmission Date: 20051028
  Serious: Yes (Hospitalization)
  Sender: FDA-Public Use
  Company Number: US-MERCK-0502USA03483

PATIENT
  Age: 64 Year
  Sex: Male
  Weight: 84 kg

DRUGS (16)
  1. ASPIRIN [Concomitant]
     Route: 065
  2. ALBUTEROL [Concomitant]
     Route: 065
  3. VIOXX [Suspect]
     Indication: ARTHRITIS
     Route: 048
     Dates: start: 19990101, end: 20040101
  4. SINGULAIR [Concomitant]
     Route: 055
  5. COMBIVENT [Concomitant]
     Indication: EMPHYSEMA
     Route: 055
  6. AZMACORT [Concomitant]
     Indication: EMPHYSEMA
     Route: 065
  7. ADVAIR [Concomitant]
     Route: 055
  8. ATROVENT [Concomitant]
     Route: 065
  9. MONOPRIL [Concomitant]
     Route: 065
  10. LEVAQUIN [Concomitant]
     Route: 065
  11. PROVENTIL [Concomitant]
     Route: 065
  12. DISALCID [Concomitant]
     Route: 065
  13. FOSAMAX [Concomitant]
     Route: 065
  14. ZOCOR [Concomitant]
     Indication: PROPHYLAXIS
     Route: 065
  15. DULCOLAX [Concomitant]
     Route: 065
  16. AGGRENOX [Concomitant]
     Indication: CEREBROVASCULAR ACCIDENT PROPHYLAXIS
     Route: 065

REACTIONS (6)
  - BLOOD CHOLESTEROL INCREASED [None]
  - CEREBROVASCULAR ACCIDENT [None]
  - HYPERTENSION [None]
  - PAIN [None]
  - PRODUCTIVE COUGH [None]
  - TRANSIENT ISCHAEMIC ATTACK [None]
